FAERS Safety Report 21507599 (Version 2)
Quarter: 2022Q4

REPORT INFORMATION
  Report Type: Spontaneous
  Country: US (occurrence: US)
  Receive Date: 20221026
  Receipt Date: 20221108
  Transmission Date: 20230112
  Serious: Yes (Hospitalization, Other)
  Sender: FDA-Public Use
  Company Number: US-SA-SAC20221020001717

PATIENT
  Age: 54 Year
  Sex: Female
  Weight: 60 kg

DRUGS (38)
  1. FABRAZYME [Suspect]
     Active Substance: AGALSIDASE BETA
     Indication: Fabry^s disease
     Dosage: 65 MG, QOW
     Route: 042
     Dates: start: 20070323
  2. HEPARIN [Concomitant]
     Active Substance: HEPARIN SODIUM
     Dosage: UNK
  3. NITROFURANTOIN [Concomitant]
     Active Substance: NITROFURANTOIN
     Dosage: UNK
  4. DULCOLAX (BISACODYL) [Concomitant]
     Active Substance: BISACODYL
     Dosage: UNK
  5. METOPROLOL SUCCINATE [Concomitant]
     Active Substance: METOPROLOL SUCCINATE
     Dosage: UNK
  6. PNEUMOVAX 23 [Concomitant]
     Active Substance: PNEUMOCOCCAL VACCINE, POLYVALENT 23
     Dosage: UNK
  7. VITAMIN D3 [Concomitant]
     Active Substance: CHOLECALCIFEROL
     Dosage: UNK
  8. VITAMIN D3 [Concomitant]
     Active Substance: CHOLECALCIFEROL
  9. EPINEPHRINE [Concomitant]
     Active Substance: EPINEPHRINE
     Dosage: UNK
  10. SEVELAMER CARBONATE [Concomitant]
     Active Substance: SEVELAMER CARBONATE
     Dosage: UNK
  11. ZOFRAN [Concomitant]
     Active Substance: ONDANSETRON HYDROCHLORIDE
     Dosage: UNK
  12. PROCHLORPERAZINE [Concomitant]
     Active Substance: PROCHLORPERAZINE
     Dosage: UNK
  13. PROGESTERONE [Concomitant]
     Active Substance: PROGESTERONE
     Dosage: UNK
  14. ASPIRIN [Concomitant]
     Active Substance: ASPIRIN
     Dosage: UNK
  15. DOCUSATE SODIUM [Concomitant]
     Active Substance: DOCUSATE SODIUM
     Dosage: UNK
  16. STERILE WATER [Concomitant]
     Active Substance: WATER
     Dosage: UNK
  17. MIDODRINE HYDROCHLORIDE [Concomitant]
     Active Substance: MIDODRINE HYDROCHLORIDE
     Dosage: UNK
  18. BISACODYL [Concomitant]
     Active Substance: BISACODYL
     Dosage: UNK
  19. BISACODYL [Concomitant]
     Active Substance: BISACODYL
  20. SODIUM CHLORIDE [Concomitant]
     Active Substance: SODIUM CHLORIDE
     Dosage: UNK
  21. SODIUM CHLORIDE [Concomitant]
     Active Substance: SODIUM CHLORIDE
  22. PANTOPRAZOLE SODIUM [Concomitant]
     Active Substance: PANTOPRAZOLE SODIUM
     Dosage: UNK
  23. GABAPENTIN [Concomitant]
     Active Substance: GABAPENTIN
     Dosage: UNK
  24. ACETAMINOPHEN [Concomitant]
     Active Substance: ACETAMINOPHEN
     Dosage: UNK
  25. CLARITHROMYCIN [Concomitant]
     Active Substance: CLARITHROMYCIN
     Dosage: UNK
  26. HYDROXYZINE HYDROCHLORIDE [Concomitant]
     Active Substance: HYDROXYZINE HYDROCHLORIDE
     Dosage: UNK
  27. ISOSORBIDE MONONITRATE [Concomitant]
     Active Substance: ISOSORBIDE MONONITRATE
     Dosage: UNK
  28. ELIQUIS [Concomitant]
     Active Substance: APIXABAN
     Dosage: UNK
  29. ELIQUIS [Concomitant]
     Active Substance: APIXABAN
  30. SHINGRIX [Concomitant]
     Active Substance: RECOMBINANT VARICELLA ZOSTER VIRUS (VZV) GLYCOPROTEIN E
     Dosage: UNK
  31. LOSARTAN [Concomitant]
     Active Substance: LOSARTAN
     Dosage: UNK
  32. PFIZER-BIONTECH COVID-19 VACCINE [Concomitant]
     Active Substance: TOZINAMERAN
     Dosage: UNK
  33. SODIUM CHLORIDE [Concomitant]
     Active Substance: SODIUM CHLORIDE
     Dosage: UNK
  34. COLD + FLU [PARACETAMOL] [Concomitant]
     Dosage: UNK
  35. UNSPECIFIED INGREDIENT [Concomitant]
     Active Substance: UNSPECIFIED INGREDIENT
     Dosage: UNK
  36. MAGNESIUM [Concomitant]
     Active Substance: MAGNESIUM
     Dosage: UNK
  37. VITAMIN B COMPLEX WITH C [Concomitant]
     Active Substance: ASCORBIC ACID\CALCIUM PANTOTHENATE\CYANOCOBALAMIN\NIACINAMIDE\PYRIDOXINE HYDROCHLORIDE\RIBOFLAVIN\TH
     Dosage: UNK
     Route: 065
  38. MIRALAX [Concomitant]
     Active Substance: POLYETHYLENE GLYCOL 3350
     Dosage: UNK
     Route: 065

REACTIONS (3)
  - Renal impairment [Unknown]
  - Dry skin [Unknown]
  - Pruritus [Unknown]

NARRATIVE: CASE EVENT DATE: 20221003
